FAERS Safety Report 13919155 (Version 1)
Quarter: 2017Q3

REPORT INFORMATION
  Report Type: Spontaneous
  Country: US (occurrence: US)
  Receive Date: 20170830
  Receipt Date: 20170830
  Transmission Date: 20171127
  Serious: No
  Sender: FDA-Public Use
  Company Number: US-PERRIGO-16US020547

PATIENT
  Age: 27 Year
  Sex: Male
  Weight: 68.27 kg

DRUGS (1)
  1. NICOTINE POLACRILEX [Suspect]
     Active Substance: NICOTINE
     Indication: SMOKING CESSATION THERAPY
     Dosage: UNK
     Route: 002
     Dates: start: 20160922, end: 20160924

REACTIONS (2)
  - Drug ineffective [Unknown]
  - Condition aggravated [Recovered/Resolved]

NARRATIVE: CASE EVENT DATE: 20160922
